FAERS Safety Report 8373661-2 (Version None)
Quarter: 2012Q2

REPORT INFORMATION
  Report Type: 
  Country: None (occurrence: None)
  Receive Date: 20120521
  Receipt Date: 20120319
  Transmission Date: 20120825
  Serious: No
  Sender: FDA-Public Use
  Company Number: US-TEVA-328865USA

PATIENT
  Sex: Female
  Weight: 67.192 kg

DRUGS (5)
  1. RITUXIMAB [Concomitant]
     Indication: NON-HODGKIN'S LYMPHOMA
     Route: 042
  2. WARFARIN SODIUM [Concomitant]
     Indication: COAGULOPATHY
     Dosage: 5 MILLIGRAM;
     Route: 048
     Dates: start: 20111101
  3. LORAZEPAM [Concomitant]
     Indication: INITIAL INSOMNIA
     Route: 048
     Dates: start: 20111201
  4. TREANDA [Suspect]
     Indication: NON-HODGKIN'S LYMPHOMA
     Route: 042
     Dates: start: 20111206
  5. DYAZIDE [Concomitant]
     Indication: BLOOD PRESSURE
     Dosage: 37.5 MILLIGRAM;
     Route: 048

REACTIONS (2)
  - NEURITIS [None]
  - HERPES ZOSTER [None]
